FAERS Safety Report 6004206-X (Version None)
Quarter: 2008Q4

REPORT INFORMATION
  Report Type: 
  Country: None (occurrence: None)
  Receive Date: 20081216
  Receipt Date: 20081208
  Transmission Date: 20090506
  Serious: Yes (Hospitalization, Other)
  Sender: FDA-Public Use
  Company Number: US-BIOGENIDEC-2008BI006733

PATIENT
  Age: 32 Year
  Sex: Female

DRUGS (6)
  1. AVONEX [Suspect]
     Indication: MULTIPLE SCLEROSIS
     Route: 030
     Dates: start: 20010830, end: 20071016
  2. AVONEX [Suspect]
     Route: 030
     Dates: start: 20080227
  3. XANAX [Concomitant]
     Indication: DRUG USE FOR UNKNOWN INDICATION
  4. CYMBALTA [Concomitant]
     Indication: DRUG USE FOR UNKNOWN INDICATION
  5. TRAZODONE HCL [Concomitant]
     Indication: DRUG USE FOR UNKNOWN INDICATION
  6. ULTRAM [Concomitant]
     Indication: DRUG USE FOR UNKNOWN INDICATION

REACTIONS (12)
  - BURNING SENSATION [None]
  - GRAND MAL CONVULSION [None]
  - HEMIPARESIS [None]
  - HYPERAESTHESIA [None]
  - HYPOAESTHESIA [None]
  - INTENTIONAL OVERDOSE [None]
  - MENTAL DISORDER [None]
  - MUSCLE SPASMS [None]
  - PAIN IN EXTREMITY [None]
  - PALLANAESTHESIA [None]
  - PARTIAL SEIZURES [None]
  - UTERINE CANCER [None]
